FAERS Safety Report 16664684 (Version 2)
Quarter: 2019Q3

REPORT INFORMATION
  Report Type: Report from Study
  Country: US (occurrence: US)
  Receive Date: 20190803
  Receipt Date: 20190807
  Transmission Date: 20191004
  Serious: Yes (Death, Other)
  Sender: FDA-Public Use
  Company Number: US-ROCHE-2369625

PATIENT
  Sex: Female

DRUGS (2)
  1. TECENTRIQ [Suspect]
     Active Substance: ATEZOLIZUMAB
     Indication: SMALL INTESTINE CARCINOMA
     Dosage: INFUSE 1200MG INTRAVENOUSLY EVERY 3 WEEK(S)
     Route: 042
  2. TECENTRIQ [Suspect]
     Active Substance: ATEZOLIZUMAB
     Indication: OFF LABEL USE

REACTIONS (3)
  - Intentional product use issue [Unknown]
  - Metastatic neoplasm [Fatal]
  - Off label use [Unknown]
